FAERS Safety Report 4991150-X (Version None)
Quarter: 2006Q2

REPORT INFORMATION
  Report Type: 
  Country: None (occurrence: None)
  Receive Date: 20060428
  Receipt Date: 20051026
  Transmission Date: 20061013
  Serious: Yes (Other)
  Sender: FDA-Public Use
  Company Number: 27835

PATIENT
  Age: 54 Year
  Sex: Female

DRUGS (1)
  1. ALDARA [Suspect]
     Indication: CONDYLOMA ACUMINATUM
     Dosage: (1 SACHET, 3 IN 1 WEEK (S)), TOPICAL
     Route: 061
     Dates: start: 20051025

REACTIONS (3)
  - ACCIDENTAL EXPOSURE [None]
  - EYE PAIN [None]
  - OCULAR HYPERAEMIA [None]
